FAERS Safety Report 9439185 (Version 2)
Quarter: 2014Q1

REPORT INFORMATION
  Report Type: Spontaneous
  Country: US (occurrence: US)
  Receive Date: 20130803
  Receipt Date: 20140117
  Transmission Date: 20141002
  Serious: Yes (Death, Hospitalization)
  Sender: FDA-Public Use
  Company Number: US-B.I. PHARMACEUTICALS,INC./RIDGEFIELD-2013-BI-23194BP

PATIENT
  Sex: Male
  Weight: 68.04 kg

DRUGS (4)
  1. PRADAXA [Suspect]
     Indication: ATRIAL FIBRILLATION
     Dosage: 150 MG
     Dates: start: 20120630, end: 20120724
  2. PRADAXA [Suspect]
     Dates: start: 20120726
  3. ASPIRIN [Concomitant]
  4. PLAVIX [Concomitant]
     Dosage: 150 MG

REACTIONS (5)
  - Haemorrhage [Fatal]
  - Upper gastrointestinal haemorrhage [Unknown]
  - Acute myocardial infarction [Unknown]
  - Anaemia [Unknown]
  - Renal failure [Unknown]
